FAERS Safety Report 4992898-3 (Version None)
Quarter: 2006Q2

REPORT INFORMATION
  Report Type: 
  Country: None (occurrence: None)
  Receive Date: 20060504
  Receipt Date: 20050928
  Transmission Date: 20061013
  Serious: Yes (Death, Hospitalization, Disabling, Other)
  Sender: FDA-Public Use
  Company Number: US-MERCK-0509USA04941

PATIENT
  Age: 45 Year
  Sex: Male
  Weight: 114 kg

DRUGS (9)
  1. VIOXX [Suspect]
     Indication: MYALGIA
     Route: 048
     Dates: start: 20000801, end: 20040901
  2. PLAVIX [Concomitant]
     Route: 065
  3. MORPHINE [Concomitant]
     Route: 065
  4. CARDIZEM [Concomitant]
     Route: 065
  5. EFFEXOR [Concomitant]
     Route: 065
  6. LANTUS [Concomitant]
     Route: 065
  7. AMBIEN [Concomitant]
     Route: 065
  8. PROMETHAZINE HYDROCHLORIDE [Concomitant]
     Route: 065
  9. NEURONTIN [Concomitant]
     Route: 065

REACTIONS (5)
  - CARDIAC DISORDER [None]
  - CARDIAC FAILURE CONGESTIVE [None]
  - CATHETERISATION CARDIAC [None]
  - DEATH [None]
  - DISABILITY [None]
